FAERS Safety Report 9790116 (Version 1)
Quarter: 2013Q4

REPORT INFORMATION
  Report Type: Spontaneous
  Country: FI (occurrence: FI)
  Receive Date: 20131231
  Receipt Date: 20131231
  Transmission Date: 20140711
  Serious: Yes (Other)
  Sender: FDA-Public Use
  Company Number: FI-ASTELLAS-2013EU011320

PATIENT
  Sex: Female

DRUGS (4)
  1. BETMIGA [Suspect]
     Dosage: 50 MG, UID/QD
     Route: 048
  2. ATORVASTATIN [Concomitant]
     Indication: HYPERCHOLESTEROLAEMIA
     Dosage: 10 MG, UID/QD
     Route: 048
  3. LINATIL [Concomitant]
     Indication: HYPERTENSION
     Dosage: 10 MG, UID/QD
     Route: 048
  4. ASPIRIN [Concomitant]
     Dosage: 100 MG, UID/QD
     Route: 048

REACTIONS (2)
  - Palpitations [Unknown]
  - Arrhythmia [Unknown]
